FAERS Safety Report 11128223 (Version 1)
Quarter: 2015Q2

REPORT INFORMATION
  Report Type: Spontaneous
  Country: GB (occurrence: None)
  Receive Date: 20150519
  Receipt Date: 20150519
  Transmission Date: 20150821
  Serious: Yes (Life-Threatening, Hospitalization, Other)
  Sender: FDA-Public Use
  Company Number: CL-629-2015

PATIENT
  Age: 41 Year
  Sex: Female

DRUGS (13)
  1. AMLODIPINE [Suspect]
     Active Substance: AMLODIPINE BESYLATE
  2. SEVELAMER [Concomitant]
     Active Substance: SEVELAMER
  3. IRBESARTAN. [Concomitant]
     Active Substance: IRBESARTAN
  4. SIMVASTATIN. [Suspect]
     Active Substance: SIMVASTATIN
     Dosage: BD
  5. COLECALCIFEROL [Concomitant]
     Active Substance: CHOLECALCIFEROL
  6. MYCOPHENOLATE MOFETIL. [Concomitant]
     Active Substance: MYCOPHENOLATE MOFETIL
  7. BISOPROLOL [Concomitant]
     Active Substance: BISOPROLOL
  8. CALCIUM CARBONATE. [Concomitant]
     Active Substance: CALCIUM CARBONATE
  9. CIPROFLOXACIN. [Suspect]
     Active Substance: CIPROFLOXACIN
     Indication: PERITONITIS
     Dosage: BD
  10. FUROSEMIDE. [Concomitant]
     Active Substance: FUROSEMIDE
  11. HYDROXYCHLOROQUINE [Concomitant]
     Active Substance: HYDROXYCHLOROQUINE
  12. ICODEXTRIN [Concomitant]
     Active Substance: ICODEXTRIN
  13. CALCITRIOL. [Concomitant]
     Active Substance: CALCITRIOL

REACTIONS (4)
  - Drug interaction [None]
  - Peritoneal dialysis [None]
  - Rhabdomyolysis [None]
  - Electrolyte imbalance [None]
